FAERS Safety Report 8955035 (Version 1)
Quarter: 2012Q4

REPORT INFORMATION
  Report Type: 
  Country: US (occurrence: US)
  Receive Date: 20121207
  Receipt Date: 20121207
  Transmission Date: 20130627
  Serious: Yes (Hospitalization)
  Sender: FDA-Public Use
  Company Number: US-US-EMD SERONO, INC.-7179783

PATIENT
  Age: 42 Year
  Sex: Female
  Weight: 82 kg

DRUGS (10)
  1. REBIF [Suspect]
     Indication: PRODUCT USED FOR UNKNOWN INDICATION
     Route: 058
     Dates: start: 20100727, end: 20110911
  2. REBIF [Suspect]
     Route: 058
     Dates: start: 20120730, end: 20121112
  3. SYNTHROID [Concomitant]
     Indication: THYROID DISORDER
  4. LEXAPRO [Concomitant]
     Indication: DEPRESSION
  5. LORAZEPAM [Concomitant]
     Indication: MUSCLE SPASMS
  6. LORAZEPAM [Concomitant]
     Indication: ANXIETY
  7. CLONAZEPAM [Concomitant]
     Indication: MUSCLE SPASMS
  8. AMITRIPTYLINE [Concomitant]
     Indication: MUSCLE SPASMS
  9. FLEXERIL [Concomitant]
     Indication: MUSCLE SPASMS
  10. UNSPECIFED INHALER [Concomitant]
     Indication: ASTHMA

REACTIONS (6)
  - Appendicitis perforated [Recovering/Resolving]
  - Abdominal infection [Recovering/Resolving]
  - Fracture [Recovering/Resolving]
  - Joint dislocation [Recovering/Resolving]
  - Bladder dysfunction [Recovering/Resolving]
  - Fall [Recovering/Resolving]
